FAERS Safety Report 13347763 (Version 4)
Quarter: 2017Q2

REPORT INFORMATION
  Report Type: Spontaneous
  Country: US (occurrence: US)
  Receive Date: 20170317
  Receipt Date: 20170525
  Transmission Date: 20170830
  Serious: Yes (Other)
  Sender: FDA-Public Use
  Company Number: US-009507513-1703USA003708

PATIENT
  Age: 36 Year
  Sex: Female
  Weight: 69.21 kg

DRUGS (1)
  1. IMPLANON [Suspect]
     Active Substance: ETONOGESTREL
     Indication: CONTRACEPTION
     Dosage: 1 IMPLANT, UNK; PLACED IN LEFT (L) ARM
     Route: 059
     Dates: start: 20151017

REACTIONS (6)
  - Unintended pregnancy [Unknown]
  - Drug dose omission [Unknown]
  - Device difficult to use [Not Recovered/Not Resolved]
  - Pregnancy with implant contraceptive [Unknown]
  - Complication associated with device [Not Recovered/Not Resolved]
  - Complication of device insertion [Recovered/Resolved]

NARRATIVE: CASE EVENT DATE: 20170105
